FAERS Safety Report 17966850 (Version 1)
Quarter: 2020Q2

REPORT INFORMATION
  Report Type: Spontaneous
  Country: US (occurrence: US)
  Receive Date: 20200629
  Receipt Date: 20200629
  Transmission Date: 20200714
  Serious: Yes (Death)
  Sender: FDA-Public Use
  Company Number: None

PATIENT
  Age: 78 Year
  Sex: Female

DRUGS (1)
  1. FASLODEX [Suspect]
     Active Substance: FULVESTRANT
     Indication: BREAST CANCER
     Dosage: AS DIRECTED
     Route: 030
     Dates: start: 20200120, end: 20200124

REACTIONS (1)
  - Death of relative [None]

NARRATIVE: CASE EVENT DATE: 20200624
